FAERS Safety Report 10434383 (Version 1)
Quarter: 2014Q3

REPORT INFORMATION
  Report Type: Spontaneous
  Country: US (occurrence: US)
  Receive Date: 20140905
  Receipt Date: 20140905
  Transmission Date: 20150326
  Serious: Yes (Other)
  Sender: FDA-Public Use
  Company Number: US-ASTRAZENECA-2014SE65719

PATIENT
  Age: 85 Year
  Sex: Female
  Weight: 59 kg

DRUGS (3)
  1. MIDODRINE [Concomitant]
     Active Substance: MIDODRINE
     Indication: BLOOD PRESSURE ABNORMAL
     Dosage: UNK DAILY IN PM
     Route: 048
  2. VITAMINS [Concomitant]
     Active Substance: VITAMINS
  3. SEROQUEL [Suspect]
     Active Substance: QUETIAPINE FUMARATE
     Indication: BIPOLAR I DISORDER
     Dosage: 100MG AM 100MG PM DAILY
     Route: 048
     Dates: start: 2007

REACTIONS (6)
  - Intentional product misuse [Unknown]
  - Eating disorder symptom [Unknown]
  - Mood altered [Unknown]
  - Feeling abnormal [Unknown]
  - Sedation [Unknown]
  - Hypotension [Unknown]
